FAERS Safety Report 10415411 (Version 1)
Quarter: 2014Q3

REPORT INFORMATION
  Report Type: Spontaneous
  Country: US (occurrence: None)
  Receive Date: 20140827
  Receipt Date: 20140827
  Transmission Date: 20150326
  Serious: Yes (Hospitalization)
  Sender: FDA-Public Use
  Company Number: None

PATIENT
  Age: 67 Year
  Sex: Male

DRUGS (1)
  1. BUSPIRONE [Suspect]
     Active Substance: BUSPIRONE HYDROCHLORIDE
     Indication: ANXIETY
     Route: 048
     Dates: start: 20110131, end: 20140618

REACTIONS (4)
  - Serotonin syndrome [None]
  - Hypoglycaemic seizure [None]
  - Dizziness [None]
  - Hallucination [None]

NARRATIVE: CASE EVENT DATE: 20140613
